FAERS Safety Report 6249051-5 (Version None)
Quarter: 2009Q2

REPORT INFORMATION
  Report Type: 
  Country: None (occurrence: None)
  Receive Date: 20090624
  Receipt Date: 20090624
  Transmission Date: 20091009
  Serious: Yes (Other)
  Sender: FDA-Public Use
  Company Number: None

PATIENT
  Age: 48 Year
  Sex: Female
  Weight: 67.1324 kg

DRUGS (1)
  1. LEVAQUIN [Suspect]
     Indication: SINUSITIS
     Dosage: 1 TABLET DAILY PO A FEW DAYS
     Route: 048
     Dates: start: 20030713, end: 20030717

REACTIONS (4)
  - BURNING SENSATION [None]
  - FROSTBITE [None]
  - PAIN IN EXTREMITY [None]
  - PERIPHERAL COLDNESS [None]
